FAERS Safety Report 17065847 (Version 5)
Quarter: 2019Q4

REPORT INFORMATION
  Report Type: Spontaneous
  Country: PL (occurrence: PL)
  Receive Date: 20191122
  Receipt Date: 20191231
  Transmission Date: 20200122
  Serious: Yes (Hospitalization, Disabling, Other)
  Sender: FDA-Public Use
  Company Number: PL-MYLANLABS-2019M1112189

PATIENT
  Age: 56 Year
  Sex: Female

DRUGS (8)
  1. SERTRALINE [Interacting]
     Active Substance: SERTRALINE HYDROCHLORIDE
     Indication: DEPRESSION
     Dosage: 100 MILLIGRAM, QD (100 MG, PER DAY, IN THE MORNING)
     Route: 065
  2. CELECOXIB. [Interacting]
     Active Substance: CELECOXIB
     Indication: BACK PAIN
     Dosage: 400 MILLIGRAM, QD
     Route: 065
  3. OMEPRAZOLE. [Suspect]
     Active Substance: OMEPRAZOLE
     Indication: BACK PAIN
     Dosage: 40 MILLIGRAM, QD
     Route: 065
  4. CELECOXIB. [Interacting]
     Active Substance: CELECOXIB
     Indication: PAIN
  5. HYDROXYZINE [Interacting]
     Active Substance: HYDROXYZINE HYDROCHLORIDE
     Indication: INITIAL INSOMNIA
     Dosage: 25 MILLIGRAM, QD (IN THE EVENING)
     Route: 065
  6. ENALAPRIL [Interacting]
     Active Substance: ENALAPRIL
     Indication: HYPERTENSION
     Dosage: 20 MILLIGRAM, QD
     Route: 065
  7. OMEPRAZOLE. [Interacting]
     Active Substance: OMEPRAZOLE
     Indication: BACK PAIN
  8. INDAPAMIDE. [Interacting]
     Active Substance: INDAPAMIDE
     Indication: HYPERTENSION
     Dosage: 1.5 MILLIGRAM, QD (QD, SR)
     Route: 065

REACTIONS (9)
  - Burning mouth syndrome [Recovered/Resolved]
  - Pain [Recovered/Resolved]
  - Hypophagia [Recovered/Resolved]
  - Drug interaction [Recovered/Resolved]
  - Product use in unapproved indication [Recovered/Resolved]
  - Dysphagia [Recovered/Resolved]
  - Iron deficiency [Recovered/Resolved]
  - Oral discomfort [Recovered/Resolved]
  - Intentional product misuse [Unknown]
